FAERS Safety Report 8892375 (Version 1)
Quarter: 2012Q4

REPORT INFORMATION
  Report Type: Spontaneous
  Country: FR (occurrence: None)
  Receive Date: 20121101
  Receipt Date: 20121101
  Transmission Date: 20130627
  Serious: Yes (Other)
  Sender: FDA-Public Use
  Company Number: FR-GDP-12415397

PATIENT
  Sex: Male

DRUGS (6)
  1. METVIXIA [Suspect]
     Dosage: 2 tube Topical
     Route: 061
     Dates: start: 20120803
  2. METVIXIA [Suspect]
     Dosage: 2 tube Topical
     Route: 061
     Dates: start: 20120803
  3. METVIXIA [Suspect]
     Route: 061
     Dates: start: 20120921
  4. METVIXIA [Suspect]
     Route: 061
     Dates: start: 20120921
  5. METVIXIA [Suspect]
     Route: 061
     Dates: start: 20121007
  6. METVIXIA [Suspect]
     Route: 061
     Dates: start: 20121007

REACTIONS (1)
  - Squamous cell carcinoma [None]
